FAERS Safety Report 4888435-4 (Version None)
Quarter: 2005Q4

REPORT INFORMATION
  Report Type: 
  Country: None (occurrence: None)
  Receive Date: 20051221
  Receipt Date: 20050831
  Transmission Date: 20060501
  Serious: No
  Sender: FDA-Public Use
  Company Number: US-YAMANOUCHI-YPA20050464

PATIENT
  Age: 76 Year
  Sex: Male
  Weight: 102.9665 kg

DRUGS (4)
  1. VESICARE [Suspect]
     Indication: INCONTINENCE
     Dosage: 5 MG QD PO
     Route: 048
     Dates: start: 20050801
  2. STALEVO 100 [Concomitant]
  3. DRUG FOR HIGH BLOOD PRESSURE [Concomitant]
  4. GLYBURIDE [Concomitant]

REACTIONS (1)
  - DRUG INEFFECTIVE [None]
